FAERS Safety Report 10039458 (Version 2)
Quarter: 2014Q2

REPORT INFORMATION
  Report Type: Report from Study
  Country: AU (occurrence: AU)
  Receive Date: 20140326
  Receipt Date: 20140402
  Transmission Date: 20141212
  Serious: Yes (Life-Threatening, Hospitalization)
  Sender: FDA-Public Use
  Company Number: AU-PFIZER INC-2014080946

PATIENT
  Age: 58 Year
  Sex: Male
  Weight: 87.7 kg

DRUGS (5)
  1. TEMSIROLIMUS [Suspect]
     Indication: MANTLE CELL LYMPHOMA
     Dosage: 50 MG, WEEKLY
     Route: 042
     Dates: start: 20140218, end: 20140311
  2. DESIPRAMINE [Suspect]
     Indication: MANTLE CELL LYMPHOMA
     Dosage: 50 MG, WEEKLY
     Route: 048
     Dates: start: 20140122, end: 20140129
  3. PREDNISONE [Suspect]
     Indication: MANTLE CELL LYMPHOMA
     Dosage: 25 MG, 1X/DAY
     Route: 048
     Dates: start: 20140226
  4. ACTRAPID [Concomitant]
     Indication: DIABETES MELLITUS
     Dosage: VARIABLE UNITS AS REQUIRED
     Route: 058
     Dates: start: 20140301
  5. NOVOMIX [Concomitant]
     Indication: DIABETES MELLITUS
     Dosage: 30 IU, AS NEEDED, VARIABLE
     Route: 058
     Dates: start: 20140304

REACTIONS (1)
  - Sepsis [Recovered/Resolved]
